FAERS Safety Report 8116843 (Version 5)
Quarter: 2018Q2

REPORT INFORMATION
  Report Type: Spontaneous
  Country: JP (occurrence: JP)
  Receive Date: 20110901
  Receipt Date: 20180531
  Transmission Date: 20180711
  Serious: Yes (Other)
  Sender: FDA-Public Use
  Company Number: JP-BAYER-2011-078161

PATIENT
  Age: 38 Year
  Sex: Female
  Weight: 49 kg

DRUGS (2)
  1. MIGSIS [Concomitant]
     Active Substance: LOMERIZINE HYDROCHLORIDE
     Dosage: DAILY DOSE 2 DF
     Route: 048
     Dates: start: 20081017, end: 2011
  2. YAZ [Suspect]
     Active Substance: DROSPIRENONE\ETHINYL ESTRADIOL
     Indication: ENDOMETRIOSIS
     Dosage: DAILY DOSE 1 DF
     Route: 048
     Dates: start: 20110127, end: 20110823

REACTIONS (9)
  - Prinzmetal angina [Recovered/Resolved]
  - Constipation [Recovering/Resolving]
  - Pollakiuria [Not Recovered/Not Resolved]
  - Dehydration [None]
  - Chest pain [Recovered/Resolved]
  - Electrocardiogram ST segment elevation [Recovered/Resolved]
  - Electrocardiogram ST segment depression [Recovered/Resolved]
  - Menstruation delayed [Recovered/Resolved]
  - Headache [Recovering/Resolving]

NARRATIVE: CASE EVENT DATE: 20110222
